FAERS Safety Report 24079711 (Version 1)
Quarter: 2024Q3

REPORT INFORMATION
  Report Type: Spontaneous
  Country: TW (occurrence: TW)
  Receive Date: 20240711
  Receipt Date: 20240711
  Transmission Date: 20241016
  Serious: Yes (Death)
  Sender: ELI LILLY AND CO
  Company Number: TW-ELI_LILLY_AND_COMPANY-TW202407004560

PATIENT
  Age: 70 Year
  Sex: Female

DRUGS (1)
  1. OLUMIANT [Suspect]
     Active Substance: BARICITINIB
     Indication: Rheumatoid arthritis
     Dosage: 1 DOSAGE FORM, DAILY
     Route: 048
     Dates: start: 20230309, end: 20240605

REACTIONS (1)
  - Immune system disorder [Fatal]
